FAERS Safety Report 5399961-6 (Version None)
Quarter: 2007Q3

REPORT INFORMATION
  Report Type: 
  Country: None (occurrence: None)
  Receive Date: 20070727
  Receipt Date: 20070727
  Transmission Date: 20080115
  Serious: Yes (Other)
  Sender: FDA-Public Use
  Company Number: None

PATIENT
  Age: 50 Year
  Sex: Male
  Weight: 105.2345 kg

DRUGS (4)
  1. BYETTA [Suspect]
     Indication: TYPE 2 DIABETES MELLITUS
     Dosage: 5 MCG BID SQ
     Route: 058
  2. ALTACE [Concomitant]
  3. METFORMIN HCL [Concomitant]
  4. PEPCID [Concomitant]

REACTIONS (2)
  - ANAL DISCOMFORT [None]
  - PAINFUL DEFAECATION [None]
